FAERS Safety Report 15795219 (Version 1)
Quarter: 2019Q1

REPORT INFORMATION
  Report Type: Spontaneous
  Country: US (occurrence: US)
  Receive Date: 20190107
  Receipt Date: 20190107
  Transmission Date: 20190417
  Serious: Yes (Other)
  Sender: FDA-Public Use
  Company Number: None

PATIENT
  Age: 28 Year
  Sex: Female
  Weight: 54 kg

DRUGS (1)
  1. EFFEXOR XR [Suspect]
     Active Substance: VENLAFAXINE HYDROCHLORIDE
     Indication: DEPRESSION
     Dosage: ?          QUANTITY:1 CAPSULE(S);?
     Route: 048

REACTIONS (8)
  - Insomnia [None]
  - Disturbance in attention [None]
  - Paranoia [None]
  - Memory impairment [None]
  - Hypersomnia [None]
  - Hallucination [None]
  - Loss of personal independence in daily activities [None]
  - Panic attack [None]

NARRATIVE: CASE EVENT DATE: 20190106
